FAERS Safety Report 24188351 (Version 1)
Quarter: 2024Q3

REPORT INFORMATION
  Report Type: Spontaneous
  Country: US (occurrence: US)
  Receive Date: 20240808
  Receipt Date: 20240808
  Transmission Date: 20241016
  Serious: No
  Sender: OTSUKA
  Company Number: US-OTSUKA-2023_021142

PATIENT
  Sex: Female
  Weight: 85.73 kg

DRUGS (2)
  1. ARIPIPRAZOLE [Suspect]
     Active Substance: ARIPIPRAZOLE
     Indication: Bipolar disorder
     Dosage: 10 MG, QD (QHS)
     Route: 065
  2. LITHIUM CARBONATE [Concomitant]
     Active Substance: LITHIUM CARBONATE
     Indication: Product used for unknown indication
     Dosage: 450 MG (ER)
     Route: 065

REACTIONS (4)
  - Fear [Not Recovered/Not Resolved]
  - Therapeutic response unexpected [Unknown]
  - Insurance issue [Unknown]
  - Inability to afford medication [Unknown]
